FAERS Safety Report 10269324 (Version 2)
Quarter: 2014Q3

REPORT INFORMATION
  Report Type: Spontaneous
  Country: US (occurrence: US)
  Receive Date: 20140701
  Receipt Date: 20140825
  Transmission Date: 20150326
  Serious: No
  Sender: FDA-Public Use
  Company Number: US-009507513-1406USA008663

PATIENT
  Age: 25 Year
  Sex: Female
  Weight: 69.39 kg

DRUGS (1)
  1. NEXPLANON [Suspect]
     Active Substance: ETONOGESTREL
     Dosage: UNK
     Route: 059
     Dates: start: 20140606

REACTIONS (6)
  - No adverse event [Unknown]
  - Medical device complication [Unknown]
  - Device deployment issue [Unknown]
  - Inflammation [Unknown]
  - Device difficult to use [Unknown]
  - Device dislocation [Unknown]

NARRATIVE: CASE EVENT DATE: 20140606
